FAERS Safety Report 8538349 (Version 11)
Quarter: 2015Q2

REPORT INFORMATION
  Report Type: Spontaneous
  Country: NO (occurrence: NO)
  Receive Date: 20120501
  Receipt Date: 20150605
  Transmission Date: 20150821
  Serious: Yes (Hospitalization, Other)
  Sender: FDA-Public Use
  Company Number: NO-BIOGENIDEC-2012BI013851

PATIENT
  Age: 51 Year
  Sex: Male

DRUGS (3)
  1. BAKLOFEN [Concomitant]
     Active Substance: BACLOFEN
  2. TYSABRI [Suspect]
     Active Substance: NATALIZUMAB
     Indication: RELAPSING-REMITTING MULTIPLE SCLEROSIS
     Route: 042
     Dates: start: 20090915, end: 20120131
  3. BOTOX [Concomitant]
     Active Substance: ONABOTULINUMTOXINA

REACTIONS (5)
  - Paralysis [Unknown]
  - Immune reconstitution inflammatory syndrome [Recovered/Resolved]
  - Staphylococcal sepsis [Recovered/Resolved]
  - Influenza [Unknown]
  - Progressive multifocal leukoencephalopathy [Recovered/Resolved]

NARRATIVE: CASE EVENT DATE: 201201
